FAERS Safety Report 5390621-4 (Version None)
Quarter: 2007Q3

REPORT INFORMATION
  Report Type: 
  Country: None (occurrence: None)
  Receive Date: 20070718
  Receipt Date: 20070713
  Transmission Date: 20080115
  Serious: Yes (Other)
  Sender: FDA-Public Use
  Company Number: JP-SANOFI-SYNTHELABO-F01200700452

PATIENT
  Sex: Male
  Weight: 66 kg

DRUGS (3)
  1. FLUOROURACIL [Suspect]
     Dosage: 676MG/BODY=400MG/M2 IN BOLUS THEN 4056MG/BODY=2400MG/M2 AS CONTINUOUS INFUSION ON DAY 1-2
     Route: 041
     Dates: start: 20050927, end: 20050928
  2. OXALIPLATIN [Suspect]
     Indication: RECTAL CANCER
     Route: 041
     Dates: start: 20050927, end: 20050927
  3. ISOVORIN [Suspect]
     Route: 041
     Dates: start: 20050927, end: 20050928

REACTIONS (2)
  - NEUTROPENIA [None]
  - PNEUMOTHORAX [None]
